FAERS Safety Report 8609332-4 (Version None)
Quarter: 2012Q3

REPORT INFORMATION
  Report Type: 
  Country: None (occurrence: None)
  Receive Date: 20120821
  Receipt Date: 20120818
  Transmission Date: 20120928
  Serious: Yes (Other)
  Sender: FDA-Public Use
  Company Number: PHHY2012IN071516

PATIENT
  Age: 55 Year
  Sex: Male

DRUGS (1)
  1. RASILEZ [Suspect]
     Indication: CARDIAC FAILURE
     Dosage: 150 MG, UNK
     Dates: start: 20100101, end: 20110101

REACTIONS (2)
  - BLOOD PRESSURE FLUCTUATION [None]
  - DIABETES MELLITUS [None]
